FAERS Safety Report 8624998-0 (Version None)
Quarter: 2012Q3

REPORT INFORMATION
  Report Type: 
  Country: None (occurrence: None)
  Receive Date: 20120827
  Receipt Date: 20120820
  Transmission Date: 20120928
  Serious: Yes (Hospitalization)
  Sender: FDA-Public Use
  Company Number: PHBS2004JP07344

PATIENT
  Age: 20 Year
  Sex: Male

DRUGS (4)
  1. CYCLOPHOSPHAMIDE [Concomitant]
     Route: 048
  2. CYCLOSPORINE [Suspect]
     Indication: FOCAL SEGMENTAL GLOMERULOSCLEROSIS
     Route: 048
  3. MYCOPHENOLATE MEFETIL [Suspect]
     Indication: NEPHROTIC SYNDROME
     Route: 048
  4. PREDNISOLONE [Concomitant]
     Route: 048

REACTIONS (7)
  - PROTEINURIA [None]
  - OLIGURIA [None]
  - DISEASE RECURRENCE [None]
  - OEDEMA [None]
  - RENAL IMPAIRMENT [None]
  - NEPHROPATHY TOXIC [None]
  - NEPHROTIC SYNDROME [None]
